FAERS Safety Report 19411132 (Version 1)
Quarter: 2021Q2

REPORT INFORMATION
  Report Type: Spontaneous
  Country: US (occurrence: US)
  Receive Date: 20210614
  Receipt Date: 20210614
  Transmission Date: 20210717
  Serious: Yes (Hospitalization)
  Sender: FDA-Public Use
  Company Number: None

PATIENT
  Age: 54 Year
  Sex: Female

DRUGS (10)
  1. FOLIC ACID. [Concomitant]
     Active Substance: FOLIC ACID
  2. GABAPENTIN. [Concomitant]
     Active Substance: GABAPENTIN
  3. HYDROCODONE [Concomitant]
     Active Substance: HYDROCODONE
  4. LEFLUNOMIDE. [Concomitant]
     Active Substance: LEFLUNOMIDE
  5. BIOTIN [Concomitant]
     Active Substance: BIOTIN
  6. CALCIUM [Concomitant]
     Active Substance: CALCIUM
  7. HUMIRA [Suspect]
     Active Substance: ADALIMUMAB
     Indication: RHEUMATOID ARTHRITIS
     Dosage: ?          OTHER FREQUENCY:EVERY TWO WEEKS;?
     Route: 058
     Dates: start: 20151223
  8. BACLOFEN. [Concomitant]
     Active Substance: BACLOFEN
  9. ZINC SULFATE. [Concomitant]
     Active Substance: ZINC SULFATE
  10. PREDNISONE. [Concomitant]
     Active Substance: PREDNISONE

REACTIONS (2)
  - Therapy interrupted [None]
  - Spinal operation [None]

NARRATIVE: CASE EVENT DATE: 20210607
